FAERS Safety Report 10051694 (Version 1)
Quarter: 2014Q1

REPORT INFORMATION
  Report Type: Spontaneous
  Country: US (occurrence: None)
  Receive Date: 20140331
  Receipt Date: 20140331
  Transmission Date: 20141002
  Serious: Yes (Death)
  Sender: FDA-Public Use
  Company Number: UTC-046410

PATIENT
  Age: 66 Year
  Sex: Male

DRUGS (12)
  1. TYVASO [Suspect]
     Indication: PULMONARY HYPERTENSION
     Dosage: 216 MCG (54 MCG, 4 IN 1 D), INHALATION
     Route: 055
     Dates: start: 20131220, end: 20140210
  2. DILTIAZEM (DILTIAZEM) [Concomitant]
  3. TAMSULOSIN (TAMSULOSIN) [Concomitant]
  4. ADCIRCA (TADALAFIL) [Concomitant]
  5. ASPIRIN (ACETYLSALICYLIC ACID) [Concomitant]
  6. ROPINIROLE (ROPINIROLE) [Concomitant]
  7. FINASTERIDE (FINASTERIDE) [Concomitant]
  8. SIMVASTATIN (SIMVASTATIN) [Concomitant]
  9. TRAMADOL (TRAMADOL) [Concomitant]
  10. GABAPENTIN (GABAPENTIN) [Concomitant]
  11. ALBUTEROL (SALBUTAMOL) [Concomitant]
  12. SPIRONOLACTONE (SPIRONOLACTONE) [Concomitant]

REACTIONS (1)
  - Death [None]
